FAERS Safety Report 8287831-5 (Version None)
Quarter: 2012Q2

REPORT INFORMATION
  Report Type: 
  Country: None (occurrence: None)
  Receive Date: 20120411
  Receipt Date: 20120411
  Transmission Date: 20120825
  Serious: Yes (Other)
  Sender: FDA-Public Use
  Company Number: None

PATIENT
  Sex: Female
  Weight: 58.9676 kg

DRUGS (4)
  1. CITALOPRAM [Suspect]
  2. ABILIFY [Suspect]
     Indication: DEPRESSION
     Dosage: 5MG DAILY ORAL
     Route: 048
     Dates: start: 20101001, end: 20111001
  3. ABILIFY [Suspect]
     Indication: ANXIETY
     Dosage: 5MG DAILY ORAL
     Route: 048
     Dates: start: 20101001, end: 20111001
  4. LEXAPRO [Suspect]
     Indication: DEPRESSION
     Dosage: 10MG DAILY ORAL
     Route: 048
     Dates: start: 20100601, end: 20111001

REACTIONS (9)
  - DISTURBANCE IN ATTENTION [None]
  - AMNESIA [None]
  - AKATHISIA [None]
  - ANXIETY [None]
  - PANIC ATTACK [None]
  - RESTLESSNESS [None]
  - MENTAL STATUS CHANGES [None]
  - DYSKINESIA [None]
  - MEMORY IMPAIRMENT [None]
